FAERS Safety Report 16076715 (Version 2)
Quarter: 2020Q4

REPORT INFORMATION
  Report Type: Spontaneous
  Country: US (occurrence: US)
  Receive Date: 20190315
  Receipt Date: 20201116
  Transmission Date: 20210113
  Serious: Yes (Disabling)
  Sender: FDA-Public Use
  Company Number: US-TEVA-2019-US-1024856

PATIENT
  Age: 64 Year
  Sex: Female

DRUGS (9)
  1. TAXOTERE [Suspect]
     Active Substance: DOCETAXEL
     Dosage: DOSAGE: 75 MILLIGRAMS, NUMBER OF CYCLES: 04; EVERY THREE WEEKS
     Route: 065
     Dates: start: 20141015
  2. TAXOTERE [Suspect]
     Active Substance: DOCETAXEL
     Dosage: DOSAGE: 75 MILLIGRAMS, NUMBER OF CYCLES: 04; EVERY THREE WEEKS
     Route: 065
     Dates: start: 20141103
  3. AMLODIPINE [Concomitant]
     Active Substance: AMLODIPINE BESYLATE
     Dates: start: 201101
  4. DOCETAXEL SAGENT [Suspect]
     Active Substance: DOCETAXEL
     Indication: BREAST CANCER FEMALE
     Dosage: DOSAGE: 75 MILLIGRAMS, NUMBER OF CYCLES: 04; EVERY THREE WEEKS
     Route: 065
     Dates: start: 20140924, end: 20141128
  5. VITAMIN D [Concomitant]
     Active Substance: VITAMIN D NOS
     Dates: start: 2009
  6. TAXOTERE [Suspect]
     Active Substance: DOCETAXEL
     Indication: BREAST CANCER FEMALE
     Dosage: DOSAGE: 75 MILLIGRAMS, NUMBER OF CYCLES: 04; EVERY THREE WEEKS
     Route: 065
     Dates: start: 20140924
  7. LEVOTHYROXINE. [Concomitant]
     Active Substance: LEVOTHYROXINE
     Dates: start: 2009
  8. PEPCID [Concomitant]
     Active Substance: FAMOTIDINE
     Dates: start: 2014
  9. NEOSAR [Concomitant]
     Active Substance: CYCLOPHOSPHAMIDE
     Indication: BREAST CANCER FEMALE
     Dosage: DOSAGE: CYCLES, NUMBER OF CYCLES: 04; EVERY THREE WEEKS
     Dates: start: 20140924, end: 20141128

REACTIONS (3)
  - Hair texture abnormal [Not Recovered/Not Resolved]
  - Alopecia [Not Recovered/Not Resolved]
  - Hair colour changes [Not Recovered/Not Resolved]

NARRATIVE: CASE EVENT DATE: 20150528
